FAERS Safety Report 9943859 (Version 1)
Quarter: 2014Q1

REPORT INFORMATION
  Report Type: Spontaneous
  Country: US (occurrence: US)
  Receive Date: 20140303
  Receipt Date: 20140303
  Transmission Date: 20141002
  Serious: No
  Sender: FDA-Public Use
  Company Number: US-GILEAD-2012-0050959

PATIENT
  Sex: Female

DRUGS (2)
  1. RANEXA [Suspect]
     Indication: PRODUCT USED FOR UNKNOWN INDICATION
  2. CARDIZEM                           /00489701/ [Concomitant]

REACTIONS (2)
  - Heart rate increased [Unknown]
  - Presyncope [Unknown]
